FAERS Safety Report 5483216-5 (Version None)
Quarter: 2007Q4

REPORT INFORMATION
  Report Type: 
  Country: None (occurrence: None)
  Receive Date: 20071009
  Receipt Date: 20070927
  Transmission Date: 20080405
  Serious: Yes (Death)
  Sender: FDA-Public Use
  Company Number: 013187

PATIENT
  Age: 54 Year
  Sex: Male
  Weight: 67 kg

DRUGS (5)
  1. PRIALT [Suspect]
     Indication: CANCER PAIN
     Dosage: 0.1 UG, ONCE/HOUR, INTRATHECAL; 0.33 UG, ONCE/HOUR, INTRATHECAL
     Route: 037
     Dates: start: 20061013, end: 20061114
  2. NEURONTIN [Concomitant]
  3. NOVALGIN /00039501/ (METAMIZOLE SODIUM) [Concomitant]
  4. TRYPTIZOL (AMITRIPTYLINE HYDROCHLORIDE) [Concomitant]
  5. DEFLAMAT (DICLOFENAC SODIUM) [Concomitant]

REACTIONS (1)
  - NEOPLASM PROGRESSION [None]
